FAERS Safety Report 4771266-3 (Version None)
Quarter: 2005Q3

REPORT INFORMATION
  Report Type: 
  Country: None (occurrence: None)
  Receive Date: 20050915
  Receipt Date: 20050830
  Transmission Date: 20060218
  Serious: Yes (Hospitalization)
  Sender: FDA-Public Use
  Company Number: 217349

PATIENT
  Age: 38 Year
  Sex: Male
  Weight: 67.1 kg

DRUGS (6)
  1. AVASTIN [Suspect]
     Indication: ADENOCARCINOMA PANCREAS
     Dosage: 10 MG/KG, Q2W, INTRAVENOUS
     Route: 042
     Dates: start: 20050616, end: 20050713
  2. DOCETAXEL (DOCETAXEL) [Suspect]
     Indication: ADENOCARCINOMA PANCREAS
     Dosage: 35 MG/M2, 1/WEEK, INTRAVENOUS
     Route: 042
     Dates: start: 20050616, end: 20050720
  3. PANCREASE (PANCRELIPASE) [Concomitant]
  4. PROTONIX [Concomitant]
  5. CORAL CALCIUM (MAGNESIUM NOS, CHOLECALCIFEROL, CALCIUM NOS) [Concomitant]
  6. OXYCODONE HCL [Concomitant]

REACTIONS (14)
  - ABDOMINAL PAIN [None]
  - ABSCESS [None]
  - ASCITES [None]
  - CARDIAC FAILURE CONGESTIVE [None]
  - EFFUSION [None]
  - ENTEROCUTANEOUS FISTULA [None]
  - LUNG INFILTRATION [None]
  - METASTASES TO GASTROINTESTINAL TRACT [None]
  - METASTASES TO LIVER [None]
  - PERFORATED ULCER [None]
  - PERITONEAL DISORDER [None]
  - PNEUMONIA ASPIRATION [None]
  - SEPSIS [None]
  - SMALL INTESTINAL OBSTRUCTION [None]
